FAERS Safety Report 9317191 (Version 1)
Quarter: 2013Q2

REPORT INFORMATION
  Report Type: Spontaneous
  Country: US (occurrence: None)
  Receive Date: 20130524
  Receipt Date: 20130524
  Transmission Date: 20140414
  Serious: Yes (Death)
  Sender: FDA-Public Use
  Company Number: 1725126

PATIENT
  Sex: 0

DRUGS (1)
  1. PRECEDEX (DEXMEDETOMIDINE HYDROCHLORIDE) INJECTION (DEXMEDETOMIDINE HYDROCHLORIDE) [Suspect]

REACTIONS (1)
  - Torsade de pointes [None]
